FAERS Safety Report 9531515 (Version 1)
Quarter: 2013Q2

REPORT INFORMATION
  Report Type: Spontaneous
  Country: US (occurrence: None)
  Receive Date: 20130503
  Receipt Date: 20130503
  Transmission Date: 20140414
  Serious: No
  Sender: FDA-Public Use
  Company Number: 1000041620

PATIENT
  Sex: Female

DRUGS (19)
  1. DALIRESP(ROFLUMILAST) [Suspect]
     Indication: CHRONIC OBSTRUCTIVE PULMONARY DISEASE
     Route: 048
     Dates: start: 20130110
  2. METHADONE [Concomitant]
  3. ROXICODONE [Concomitant]
  4. SYNTHROID [Suspect]
  5. IMDUR [Suspect]
  6. CALAN [Suspect]
  7. PREMARIN [Concomitant]
  8. METHADONE [Concomitant]
  9. ROXICADONE(OXYCODONE HYDROCHLORIDE [Concomitant]
  10. SYNTHROID(LEVOTHYROXINE SODIUM)(LEVOTHYROXINE SODIUM) [Concomitant]
  11. IMDUR(ISOSORBIDE MONONITRATE)(ISOSORBIDE MONONITRATE) [Concomitant]
  12. CALAN(VERAPAMIL)(VERAPAMIL) [Concomitant]
  13. PREMARIN(ESTROGEN CONJUGATED) (ESTROGENS CONJUGATED) [Concomitant]
  14. AMBIEN(ZOLPIDEM TARTRATE)(ZOLPIDEM TARTRATE) [Concomitant]
  15. ADVAIR (FLUTICASONE, SALMETEROL)(FLUTICASONE, SALMETEROL) [Concomitant]
  16. LASIX(FUROSEMIDE)(FUROSEMIDE) [Concomitant]
  17. MIRAPEX(PRAMIPEXOLE DIHYDROCHLORIDE)(PRAMIPEXOLE DIHYDROCHLORIDE) [Concomitant]
  18. PREDNISONE(PREDNISONE)(PREDNISONE) [Concomitant]
  19. VITAMIN B 12(COBALAMIN)(INJECTION)(COBALAMIN) [Concomitant]

REACTIONS (1)
  - Hyperhidrosis [None]
